FAERS Safety Report 9412043 (Version 1)
Quarter: 2013Q3

REPORT INFORMATION
  Report Type: Spontaneous
  Country: US (occurrence: None)
  Receive Date: 20130719
  Receipt Date: 20130719
  Transmission Date: 20140515
  Serious: Yes (Other)
  Sender: FDA-Public Use
  Company Number: None

PATIENT
  Age: 37 Year
  Sex: Female
  Weight: 58.06 kg

DRUGS (1)
  1. DYSPORT [Suspect]
     Indication: SKIN WRINKLING
     Dosage: 30 UNITS
     Dates: start: 20130612, end: 20130612

REACTIONS (6)
  - Headache [None]
  - Urticaria [None]
  - Swelling face [None]
  - Swollen tongue [None]
  - Influenza like illness [None]
  - Alopecia [None]
